FAERS Safety Report 24695042 (Version 1)
Quarter: 2024Q4

REPORT INFORMATION
  Report Type: Spontaneous
  Country: US (occurrence: None)
  Receive Date: 20241204
  Receipt Date: 20241204
  Transmission Date: 20250115
  Serious: Yes (Death)
  Sender: Public
  Company Number: None

PATIENT
  Age: 55 Year
  Sex: Female
  Weight: 46 kg

DRUGS (1)
  1. MEGESTROL ACETATE [Suspect]
     Active Substance: MEGESTROL ACETATE
     Dates: end: 20241119

REACTIONS (3)
  - Intestinal perforation [None]
  - Peritoneal disorder [None]
  - Large intestinal stenosis [None]

NARRATIVE: CASE EVENT DATE: 20241125
